FAERS Safety Report 8773654 (Version 1)
Quarter: 2012Q4

REPORT INFORMATION
  Report Type: 
  Country: US (occurrence: US)
  Receive Date: 20120907
  Receipt Date: 20120907
  Transmission Date: 20130627
  Serious: Yes (Hospitalization)
  Sender: FDA-Public Use
  Company Number: PHEH2012US017302

PATIENT
  Sex: Female

DRUGS (6)
  1. AFINITOR [Suspect]
     Indication: BREAST CANCER
     Dosage: 10 mg, QD
     Route: 048
     Dates: start: 20120806
  2. EXEMESTANE [Concomitant]
     Dosage: 25 mg, UNK
  3. COREG [Concomitant]
     Dosage: 6.25 mg, UNK
  4. GABAPENTIN [Concomitant]
  5. ASPIRIN [Concomitant]
     Dosage: 81 mg, UNK
  6. PLAVIX [Concomitant]

REACTIONS (5)
  - Toothache [Unknown]
  - Gingival swelling [Unknown]
  - Pain [Unknown]
  - Neck pain [Unknown]
  - Blood count abnormal [Unknown]
